FAERS Safety Report 24284167 (Version 1)
Quarter: 2024Q3

REPORT INFORMATION
  Report Type: Spontaneous
  Country: CN (occurrence: CN)
  Receive Date: 20240905
  Receipt Date: 20240905
  Transmission Date: 20241016
  Serious: Yes (Other)
  Sender: ROCHE
  Company Number: CN-ROCHE-10000072447

PATIENT
  Age: 58 Year
  Sex: Female

DRUGS (6)
  1. BEVACIZUMAB [Suspect]
     Active Substance: BEVACIZUMAB
     Indication: Lung neoplasm malignant
     Route: 042
     Dates: start: 20240730, end: 20240730
  2. BEVACIZUMAB [Suspect]
     Active Substance: BEVACIZUMAB
     Indication: Lymphoma
  3. CISPLATIN [Suspect]
     Active Substance: CISPLATIN
     Indication: Lung neoplasm malignant
     Route: 042
     Dates: start: 20240730, end: 20240730
  4. CISPLATIN [Suspect]
     Active Substance: CISPLATIN
     Indication: Lymphoma
  5. SINTILIMAB [Suspect]
     Active Substance: SINTILIMAB
     Indication: Lung neoplasm malignant
     Route: 042
     Dates: start: 20240730, end: 20240730
  6. SINTILIMAB [Suspect]
     Active Substance: SINTILIMAB
     Indication: Lymphoma

REACTIONS (2)
  - Myelosuppression [Recovering/Resolving]
  - Decreased appetite [Recovering/Resolving]

NARRATIVE: CASE EVENT DATE: 20240820
